FAERS Safety Report 6579084-0 (Version None)
Quarter: 2010Q1

REPORT INFORMATION
  Report Type: 
  Country: None (occurrence: None)
  Receive Date: 20100212
  Receipt Date: 20100201
  Transmission Date: 20100710
  Serious: Yes (Other)
  Sender: FDA-Public Use
  Company Number: PE-JNJFOC-20100201755

PATIENT
  Age: 48 Year

DRUGS (2)
  1. REMICADE [Suspect]
     Indication: PSORIASIS
     Dosage: 2ND DOSE
     Route: 042
  2. REMICADE [Suspect]
     Dosage: 1ST DOSE
     Route: 042

REACTIONS (1)
  - TUBERCULOSIS [None]
